FAERS Safety Report 20424490 (Version 1)
Quarter: 2022Q1

REPORT INFORMATION
  Report Type: Spontaneous
  Country: IT (occurrence: IT)
  Receive Date: 20220203
  Receipt Date: 20220203
  Transmission Date: 20220423
  Serious: Yes (Death, Other)
  Sender: FDA-Public Use
  Company Number: IT-EXELIXIS-CABO-21042731

PATIENT
  Age: 72 Year
  Sex: Male

DRUGS (4)
  1. CABOMETYX [Suspect]
     Active Substance: CABOZANTINIB S-MALATE
     Indication: Metastatic renal cell carcinoma
     Dosage: 60 MG, QD
     Route: 065
     Dates: start: 201905, end: 201909
  2. GLUTATIONE [Concomitant]
     Indication: Hypertransaminasaemia
  3. NIVOLUMAB [Concomitant]
     Active Substance: NIVOLUMAB
     Indication: Renal cancer
  4. Epaclin plus [Concomitant]
     Indication: Hypertransaminasaemia

REACTIONS (1)
  - Malignant neoplasm progression [Fatal]
